FAERS Safety Report 21034664 (Version 1)
Quarter: 2022Q3

REPORT INFORMATION
  Report Type: Spontaneous
  Country: CZ (occurrence: CZ)
  Receive Date: 20220701
  Receipt Date: 20220701
  Transmission Date: 20221027
  Serious: Yes (Death)
  Sender: FDA-Public Use
  Company Number: CZ-PFIZER INC-PV202200012883

PATIENT
  Sex: Male

DRUGS (3)
  1. MYLOTARG [Suspect]
     Active Substance: GEMTUZUMAB OZOGAMICIN
     Dosage: INDUCTION THERAPY
  2. CYTARABINE [Suspect]
     Active Substance: CYTARABINE
     Dosage: INDUCTION THERAPY
  3. DAUNORUBICIN HYDROCHLORIDE [Suspect]
     Active Substance: DAUNORUBICIN HYDROCHLORIDE
     Dosage: INDUCTION THERAPY

REACTIONS (2)
  - Sepsis [Fatal]
  - Hepatic failure [Fatal]
